FAERS Safety Report 8832594 (Version 2)
Quarter: 2012Q4

REPORT INFORMATION
  Report Type: 
  Country: US (occurrence: US)
  Receive Date: 20121010
  Receipt Date: 20121017
  Transmission Date: 20130627
  Serious: Yes (Death, Hospitalization)
  Sender: FDA-Public Use
  Company Number: US-009507513-1210USA003667

PATIENT
  Sex: Male

DRUGS (3)
  1. INTEGRILIN [Suspect]
     Indication: PERCUTANEOUS CORONARY INTERVENTION
  2. COUMADIN [Concomitant]
  3. ASPIRIN [Concomitant]

REACTIONS (2)
  - Myocardial infarction [Fatal]
  - Stent placement [Unknown]
